FAERS Safety Report 7879986-9 (Version None)
Quarter: 2011Q4

REPORT INFORMATION
  Report Type: 
  Country: None (occurrence: None)
  Receive Date: 20111101
  Receipt Date: 20111025
  Transmission Date: 20120403
  Serious: Yes (Hospitalization)
  Sender: FDA-Public Use
  Company Number: US-GILEAD-2011-0045256

PATIENT
  Age: 16 Year
  Sex: Female

DRUGS (4)
  1. ADCIRCA [Concomitant]
  2. FLOLAN [Concomitant]
  3. REVATIO [Concomitant]
  4. LETAIRIS [Suspect]
     Indication: PRODUCT USED FOR UNKNOWN INDICATION
     Dosage: 10 MG, UNK
     Route: 048
     Dates: start: 20070927

REACTIONS (1)
  - SYSTEMIC LUPUS ERYTHEMATOSUS [None]
